FAERS Safety Report 15389582 (Version 1)
Quarter: 2018Q3

REPORT INFORMATION
  Report Type: Spontaneous
  Country: US (occurrence: US)
  Receive Date: 20180907
  Receipt Date: 20180907
  Transmission Date: 20181010
  Serious: Yes (Hospitalization, Other)
  Sender: FDA-Public Use
  Company Number: None

PATIENT
  Age: 90 Year
  Sex: Female

DRUGS (1)
  1. VERZENIO [Suspect]
     Active Substance: ABEMACICLIB
     Indication: BREAST CANCER
     Route: 048
     Dates: start: 20180801, end: 20180805

REACTIONS (4)
  - Renal failure [None]
  - Fatigue [None]
  - Decreased appetite [None]
  - Drug interaction [None]

NARRATIVE: CASE EVENT DATE: 20180805
